FAERS Safety Report 8806247 (Version 5)
Quarter: 2013Q1

REPORT INFORMATION
  Report Type: Spontaneous
  Country: BR (occurrence: BR)
  Receive Date: 20120925
  Receipt Date: 20130317
  Transmission Date: 20140127
  Serious: Yes (Hospitalization, Other)
  Sender: FDA-Public Use
  Company Number: PHHY2012BR082715

PATIENT
  Sex: Female
  Weight: 46 kg

DRUGS (2)
  1. FORASEQ [Suspect]
     Indication: EMPHYSEMA
     Dosage: ONE INHALATION OF EACH TREATMENT, TWICE A DAY
  2. FORASEQ [Suspect]
     Dosage: UNK UKN, UNK

REACTIONS (6)
  - Uterine polyp [Recovered/Resolved]
  - Osteoarthritis [Unknown]
  - Bone disorder [Unknown]
  - Glaucoma [Unknown]
  - Device malfunction [Unknown]
  - Incorrect dose administered [Unknown]
